FAERS Safety Report 19653224 (Version 1)
Quarter: 2021Q3

REPORT INFORMATION
  Report Type: Spontaneous
  Country: US (occurrence: US)
  Receive Date: 20210803
  Receipt Date: 20210803
  Transmission Date: 20211014
  Serious: Yes (Hospitalization, Congenital Anomaly, Other)
  Sender: FDA-Public Use
  Company Number: US-GLAXOSMITHKLINE-US2021GSK160877

PATIENT
  Weight: 2.19 kg

DRUGS (1)
  1. VALACICLOVIR [Suspect]
     Active Substance: VALACYCLOVIR HYDROCHLORIDE
     Indication: HERPES SIMPLEX
     Dosage: UNK
     Route: 064

REACTIONS (13)
  - Rash vesicular [Recovered/Resolved]
  - Premature baby [Unknown]
  - Chorioretinal scar [Unknown]
  - Congenital herpes simplex infection [Recovered/Resolved]
  - Skin atrophy [Recovered/Resolved]
  - Cerebral atrophy congenital [Unknown]
  - Foetal exposure during pregnancy [Unknown]
  - Skin lesion [Recovered/Resolved]
  - Infantile apnoea [Recovered/Resolved]
  - Erythema [Recovered/Resolved]
  - Skin erosion [Recovered/Resolved]
  - Nonreassuring foetal heart rate pattern [Unknown]
  - Gliosis [Unknown]
